FAERS Safety Report 5502804-0 (Version None)
Quarter: 2007Q4

REPORT INFORMATION
  Report Type: 
  Country: None (occurrence: None)
  Receive Date: 20071031
  Receipt Date: 20071026
  Transmission Date: 20080405
  Serious: Yes (Hospitalization)
  Sender: FDA-Public Use
  Company Number: PL-ASTRAZENECA-2007SE05758

PATIENT
  Sex: Male
  Weight: 86 kg

DRUGS (5)
  1. BETALOC ZOC [Suspect]
     Indication: HYPERTENSION
     Route: 048
     Dates: start: 20070801, end: 20070808
  2. LOKREN [Suspect]
     Indication: HYPERTENSION
     Route: 048
     Dates: start: 20070801, end: 20070808
  3. LORISTA [Concomitant]
     Route: 048
  4. TERTENSIF SR [Concomitant]
     Route: 048
  5. POLOCARD [Concomitant]
     Route: 048

REACTIONS (2)
  - BRADYCARDIA [None]
  - LOSS OF CONSCIOUSNESS [None]
